FAERS Safety Report 24230622 (Version 2)
Quarter: 2024Q3

REPORT INFORMATION
  Report Type: Spontaneous
  Country: JP (occurrence: JP)
  Receive Date: 20240821
  Receipt Date: 20240927
  Transmission Date: 20241017
  Serious: No
  Sender: BRISTOL MYERS SQUIBB
  Company Number: JP-BRISTOL-MYERS SQUIBB COMPANY-2024-128664

PATIENT

DRUGS (2)
  1. VIDAZA [Suspect]
     Active Substance: AZACITIDINE
     Indication: Myelodysplastic syndrome
     Dosage: 1ST CYCLE
     Route: 042
  2. VIDAZA [Suspect]
     Active Substance: AZACITIDINE
     Dosage: 1ST CYCLE
     Route: 042

REACTIONS (2)
  - Dermatitis allergic [Unknown]
  - Pyrexia [Unknown]
